FAERS Safety Report 18575381 (Version 1)
Quarter: 2020Q4

REPORT INFORMATION
  Report Type: Spontaneous
  Country: DE (occurrence: DE)
  Receive Date: 20201203
  Receipt Date: 20201203
  Transmission Date: 20210114
  Serious: Yes (Hospitalization)
  Sender: FDA-Public Use
  Company Number: DE-MYLANLABS-2020M1098180

PATIENT
  Age: 61 Year
  Sex: Female

DRUGS (7)
  1. CLOPIDOGREL [Suspect]
     Active Substance: CLOPIDOGREL BISULFATE
     Indication: PRODUCT USED FOR UNKNOWN INDICATION
     Dosage: 75 MILLIGRAM, QD (75 MG, 1-0-0-0 )
  2. OPIPRAMOL [Concomitant]
     Active Substance: OPIPRAMOL
     Dosage: 50 MILLIGRAM, BID (50 MG, 1-0-1-0)
  3. ASPIRIN. [Suspect]
     Active Substance: ASPIRIN
     Indication: PRODUCT USED FOR UNKNOWN INDICATION
     Dosage: 100 MILLIGRAM, QD (100 MG, 0-1-0-0)
  4. RAMIPRIL. [Concomitant]
     Active Substance: RAMIPRIL
     Dosage: 5 MILLIGRAM, QD (5 MG, 1-0-0-0)
  5. EISEN                              /00023501/ [Concomitant]
     Active Substance: IRON
     Dosage: 100 MILLIGRAM, QD (100 MG, 1-0-0-0)
  6. HYDROCHLOROTHIAZID [Concomitant]
     Active Substance: HYDROCHLOROTHIAZIDE
     Dosage: 25 MILLIGRAM, QD (25 MG, 1-0-0-0)
  7. ATORVASTATIN [Concomitant]
     Active Substance: ATORVASTATIN
     Dosage: 40 MILLIGRAM, QD (40 MG, 0-0-1-0)

REACTIONS (2)
  - Haematochezia [Unknown]
  - Anaemia [Unknown]
